FAERS Safety Report 10146816 (Version 1)
Quarter: 2014Q2

REPORT INFORMATION
  Report Type: Spontaneous
  Country: US (occurrence: None)
  Receive Date: 20140501
  Receipt Date: 20140501
  Transmission Date: 20141212
  Serious: No
  Sender: FDA-Public Use
  Company Number: None

PATIENT
  Sex: 0

DRUGS (1)
  1. FIRST VANCOMYCIN RX [Suspect]
     Dates: start: 20140430

REACTIONS (1)
  - Physical product label issue [None]
